FAERS Safety Report 5063423-6 (Version None)
Quarter: 2006Q3

REPORT INFORMATION
  Report Type: 
  Country: None (occurrence: None)
  Receive Date: 20060727
  Receipt Date: 20060721
  Transmission Date: 20061208
  Serious: Yes (Death, Other)
  Sender: FDA-Public Use
  Company Number: BE-AVENTIS-200614014EU

PATIENT
  Age: 75 Year
  Sex: Male

DRUGS (9)
  1. ENOXAPARIN SODIUM [Suspect]
     Indication: THROMBOSIS PROPHYLAXIS
     Route: 058
     Dates: start: 20060704, end: 20060717
  2. COAPROVEL [Concomitant]
     Indication: HYPERTENSION
     Route: 048
     Dates: end: 20060717
  3. DAFALGAN [Concomitant]
     Indication: ANALGESIC EFFECT
     Route: 048
     Dates: end: 20060717
  4. DUOVENT [Concomitant]
     Indication: DYSPNOEA
     Route: 055
     Dates: end: 20060717
  5. EMCORETIC [Concomitant]
     Indication: HYPERTENSION
     Route: 048
     Dates: end: 20060717
  6. LAMISIL [Concomitant]
     Indication: FUNGAL INFECTION
     Route: 048
     Dates: end: 20060717
  7. MYSOLINE [Concomitant]
     Indication: PARKINSON'S DISEASE
     Route: 048
     Dates: end: 20060717
  8. ZANTAC [Concomitant]
     Indication: PROPHYLAXIS AGAINST GASTROINTESTINAL ULCER
     Route: 048
     Dates: end: 20060717
  9. ALLOPURINOL [Concomitant]
     Indication: HYPERTENSION
     Route: 048
     Dates: end: 20060717

REACTIONS (10)
  - BALANCE DISORDER [None]
  - BRAIN STEM INFARCTION [None]
  - CONFUSIONAL STATE [None]
  - COUGH [None]
  - DEATH [None]
  - DYSPNOEA [None]
  - MYOCARDIAL INFARCTION [None]
  - OEDEMA PERIPHERAL [None]
  - PULMONARY EMBOLISM [None]
  - WHEEZING [None]
